FAERS Safety Report 11953178 (Version 1)
Quarter: 2016Q1

REPORT INFORMATION
  Report Type: Spontaneous
  Country: US (occurrence: US)
  Receive Date: 20160126
  Receipt Date: 20160126
  Transmission Date: 20160526
  Serious: No
  Sender: FDA-Public Use
  Company Number: US-BAUSCH-BL-2015-012458

PATIENT
  Sex: Female
  Weight: 79.45 kg

DRUGS (2)
  1. ZYRTEC-D ALLERGY AND CONGESTION [Concomitant]
     Active Substance: CETIRIZINE HYDROCHLORIDE\PSEUDOEPHEDRINE HYDROCHLORIDE
     Indication: PRODUCT USED FOR UNKNOWN INDICATION
  2. ALAWAY [Suspect]
     Active Substance: KETOTIFEN FUMARATE
     Indication: HYPERSENSITIVITY
     Dosage: APPLIED ONE DROP IN EACH EYE ONCE
     Route: 047
     Dates: start: 20150429, end: 20150429

REACTIONS (5)
  - Eye pain [Recovered/Resolved]
  - Eye irritation [Recovered/Resolved]
  - Burning sensation [Recovering/Resolving]
  - Dysgeusia [Not Recovered/Not Resolved]
  - Expired product administered [Unknown]

NARRATIVE: CASE EVENT DATE: 20150429
